FAERS Safety Report 24106806 (Version 2)
Quarter: 2024Q3

REPORT INFORMATION
  Report Type: Report from Study
  Country: GB (occurrence: GB)
  Receive Date: 20240717
  Receipt Date: 20240920
  Transmission Date: 20241016
  Serious: Yes (Hospitalization, Other)
  Sender: SANDOZ
  Company Number: GB-SANDOZ-SDZ2024GB065619

PATIENT
  Sex: Male

DRUGS (1)
  1. OMNITROPE [Suspect]
     Active Substance: SOMATROPIN
     Indication: Pituitary gonadotropin hyperfunction
     Dosage: 0.20 MG, QD,  SUREPAL 5 5MG/1.5ML, 5 CARTRIDGE
     Route: 058

REACTIONS (3)
  - Cerebral disorder [Unknown]
  - Pneumonia [Unknown]
  - Product packaging quantity issue [Unknown]
